FAERS Safety Report 8586273-2 (Version None)
Quarter: 2012Q3

REPORT INFORMATION
  Report Type: 
  Country: None (occurrence: None)
  Receive Date: 20120810
  Receipt Date: 20120807
  Transmission Date: 20120928
  Serious: Yes (Other)
  Sender: FDA-Public Use
  Company Number: NZ-ROCHE-1098162

PATIENT

DRUGS (1)
  1. MABTHERA [Suspect]
     Indication: EPSTEIN-BARR VIRUS INFECTION
     Route: 042

REACTIONS (1)
  - POST TRANSPLANT LYMPHOPROLIFERATIVE DISORDER [None]
